FAERS Safety Report 6576432-2 (Version None)
Quarter: 2010Q1

REPORT INFORMATION
  Report Type: 
  Country: None (occurrence: None)
  Receive Date: 20100210
  Receipt Date: 20100129
  Transmission Date: 20100710
  Serious: Yes (Hospitalization, Other)
  Sender: FDA-Public Use
  Company Number: PHEH2009US15401

PATIENT
  Sex: Male

DRUGS (8)
  1. EXJADE [Suspect]
     Indication: OESOPHAGEAL CARCINOMA
     Dosage: 1250 MG, DAILY
     Route: 048
     Dates: start: 20091101
  2. EXJADE [Suspect]
     Indication: ANAEMIA
  3. ZOCOR [Concomitant]
  4. POTASSIUM [Concomitant]
  5. PANCREASE MT [Concomitant]
  6. OMEPRAZOLE [Concomitant]
  7. MULTI-VITAMIN [Concomitant]
  8. ISOSORBIDE MONONITRATE [Concomitant]

REACTIONS (4)
  - ASCITES [None]
  - NAUSEA [None]
  - PLEURAL EFFUSION [None]
  - THROMBOSIS [None]
